FAERS Safety Report 6554317-5 (Version None)
Quarter: 2010Q1

REPORT INFORMATION
  Report Type: 
  Country: None (occurrence: None)
  Receive Date: 20100127
  Receipt Date: 20100121
  Transmission Date: 20100710
  Serious: Yes (Other)
  Sender: FDA-Public Use
  Company Number: IT-ALLERGAN-1000919US

PATIENT
  Age: 75 Year
  Sex: Male

DRUGS (6)
  1. TIMOLOL 0.5% [Suspect]
     Indication: INTRAOCULAR PRESSURE INCREASED
  2. BRIMONIDINE TARTRATE [Suspect]
     Indication: INTRAOCULAR PRESSURE INCREASED
  3. PILOCARPINA 2% [Suspect]
     Indication: INTRAOCULAR PRESSURE INCREASED
     Route: 047
  4. LATANOPROST [Suspect]
     Indication: INTRAOCULAR PRESSURE INCREASED
  5. ACETAZOLAMIDE [Suspect]
     Indication: INTRAOCULAR PRESSURE INCREASED
     Route: 048
  6. PLAVIX [Suspect]
     Indication: CORONARY ARTERY DISEASE
     Dosage: 75 MG, QD
     Route: 048

REACTIONS (4)
  - CORNEAL DISORDER [None]
  - DRUG INEFFECTIVE [None]
  - HYPHAEMA [None]
  - VITREOUS HAEMORRHAGE [None]
